FAERS Safety Report 10886030 (Version 1)
Quarter: 2015Q1

REPORT INFORMATION
  Report Type: Spontaneous
  Country: US (occurrence: None)
  Receive Date: 20150302
  Receipt Date: 20150302
  Transmission Date: 20150721
  Serious: Yes (Disabling)
  Sender: FDA-Public Use
  Company Number: TPU2015-00056

PATIENT
  Sex: Female

DRUGS (3)
  1. LIDOCAINE PATCH [Suspect]
     Active Substance: LIDOCAINE
     Indication: PAIN
     Route: 061
  2. A LOT OF STRONG MEDS (ANALGESICS) [Concomitant]
  3. LIDODERM [Suspect]
     Active Substance: LIDOCAINE
     Indication: PAIN
     Route: 061

REACTIONS (5)
  - Intervertebral disc disorder [None]
  - Product adhesion issue [None]
  - Incorrect drug administration duration [None]
  - Product substitution issue [None]
  - Depression [None]
